FAERS Safety Report 6071328-7 (Version None)
Quarter: 2009Q1

REPORT INFORMATION
  Report Type: 
  Country: None (occurrence: None)
  Receive Date: 20090205
  Receipt Date: 20090126
  Transmission Date: 20090719
  Serious: Yes (Disabling)
  Sender: FDA-Public Use
  Company Number: US025365

PATIENT
  Sex: Female

DRUGS (3)
  1. ACTIQ [Suspect]
     Indication: FIBROMYALGIA
     Dosage: BUCCAL
     Route: 002
  2. ACTIQ [Suspect]
     Indication: HEADACHE
     Dosage: BUCCAL
     Route: 002
  3. ACTIQ [Suspect]
     Indication: PAIN
     Dosage: BUCCAL
     Route: 002

REACTIONS (3)
  - DRUG PRESCRIBING ERROR [None]
  - INCORRECT DOSE ADMINISTERED [None]
  - MULTIPLE INJURIES [None]
